FAERS Safety Report 7739451-6 (Version None)
Quarter: 2011Q3

REPORT INFORMATION
  Report Type: 
  Country: None (occurrence: None)
  Receive Date: 20110909
  Receipt Date: 20110830
  Transmission Date: 20111222
  Serious: Yes (Other)
  Sender: FDA-Public Use
  Company Number: IN-SANOFI-AVENTIS-2011SA056994

PATIENT
  Age: 24 Year
  Sex: Male

DRUGS (1)
  1. ALLEGRA [Suspect]
     Indication: URTICARIA
     Route: 048
     Dates: start: 20110701, end: 20110801

REACTIONS (1)
  - ALANINE AMINOTRANSFERASE INCREASED [None]
